FAERS Safety Report 9691699 (Version 1)
Quarter: 2013Q4

REPORT INFORMATION
  Report Type: Report from Study
  Country: US (occurrence: US)
  Receive Date: 20131115
  Receipt Date: 20131115
  Transmission Date: 20140711
  Serious: Yes (Hospitalization, Other)
  Sender: FDA-Public Use
  Company Number: US-ABBVIE-13P-163-1167605-00

PATIENT
  Sex: Male
  Weight: 127.12 kg

DRUGS (4)
  1. HUMIRA [Suspect]
     Indication: CROHN^S DISEASE
     Dosage: 4 INJECTIONS-1 DAY LOADING DOSE/ONCE
     Route: 058
     Dates: start: 2009, end: 2009
  2. HUMIRA [Suspect]
     Dosage: 2 INJECTIONS- 2 WEEKS AFTER THE LOADING DOSE/ONCE
     Route: 058
     Dates: start: 2009, end: 2009
  3. HUMIRA [Suspect]
     Dosage: 2 WEEKS AFTER THE 80MG LOADING DOSE
     Route: 058
     Dates: start: 2009, end: 2010
  4. HUMIRA [Suspect]
     Route: 058
     Dates: start: 2011

REACTIONS (4)
  - Colitis [Recovered/Resolved]
  - Post procedural infection [Recovered/Resolved]
  - Staphylococcal infection [Recovered/Resolved]
  - Fistula discharge [Recovered/Resolved]
